FAERS Safety Report 26048054 (Version 4)
Quarter: 2025Q4

REPORT INFORMATION
  Report Type: Report from Study
  Country: US (occurrence: US)
  Receive Date: 20251114
  Receipt Date: 20251212
  Transmission Date: 20260117
  Serious: Yes (Other)
  Sender: MALLINCKRODT
  Company Number: US-MALLINCKRODT-MNK202507006

PATIENT
  Age: 53 Year
  Sex: Male
  Weight: 240 kg

DRUGS (2)
  1. CORTICOTROPIN [Suspect]
     Active Substance: CORTICOTROPIN
     Indication: Psoriatic arthropathy
     Dosage: 40 UNITS
     Route: 058
  2. IBUPROFEN [Concomitant]
     Active Substance: IBUPROFEN
     Indication: Pain
     Dosage: UNKNOWN

REACTIONS (2)
  - Vertebroplasty [Recovering/Resolving]
  - Therapy non-responder [Unknown]

NARRATIVE: CASE EVENT DATE: 20251106
